FAERS Safety Report 10049998 (Version 1)
Quarter: 2014Q2

REPORT INFORMATION
  Report Type: Report from Study
  Country: US (occurrence: US)
  Receive Date: 20140401
  Receipt Date: 20140401
  Transmission Date: 20141212
  Serious: Yes (Other)
  Sender: FDA-Public Use
  Company Number: US-NAPPMUNDI-USA-2014-0112411

PATIENT
  Sex: Male

DRUGS (2)
  1. OXY CR TAB [Suspect]
     Indication: PRODUCT USED FOR UNKNOWN INDICATION
     Dosage: 80 MG, BID
     Route: 048
  2. CORTICOSTEROIDS [Suspect]
     Indication: INTERVERTEBRAL DISC DISORDER
     Route: 051

REACTIONS (3)
  - Metastatic carcinoma of the bladder [Not Recovered/Not Resolved]
  - Convulsion [Not Recovered/Not Resolved]
  - Intervertebral disc disorder [Unknown]
